FAERS Safety Report 8258674-3 (Version None)
Quarter: 2012Q2

REPORT INFORMATION
  Report Type: 
  Country: None (occurrence: None)
  Receive Date: 20120403
  Receipt Date: 20120403
  Transmission Date: 20120825
  Serious: Yes (Hospitalization)
  Sender: FDA-Public Use
  Company Number: None

PATIENT
  Age: 42 Year
  Sex: Female
  Weight: 65.5 kg

DRUGS (20)
  1. MONTELUKAST [Concomitant]
  2. GOSERELIN [Suspect]
     Indication: BREAST CANCER METASTATIC
     Dosage: GOSERELIN 3.6 MG MONTHLY SUBCUTANEOUS
     Route: 058
     Dates: start: 20111222
  3. GOSERELIN [Suspect]
     Indication: OESTROGEN RECEPTOR ASSAY POSITIVE
     Dosage: GOSERELIN 3.6 MG MONTHLY SUBCUTANEOUS
     Route: 058
     Dates: start: 20111222
  4. GOSERELIN [Suspect]
     Indication: BREAST CANCER METASTATIC
     Dosage: GOSERELIN 3.6 MG MONTHLY SUBCUTANEOUS
     Route: 058
     Dates: start: 20120119
  5. GOSERELIN [Suspect]
     Indication: OESTROGEN RECEPTOR ASSAY POSITIVE
     Dosage: GOSERELIN 3.6 MG MONTHLY SUBCUTANEOUS
     Route: 058
     Dates: start: 20120119
  6. GOSERELIN [Suspect]
     Indication: BREAST CANCER METASTATIC
     Dosage: GOSERELIN 3.6 MG MONTHLY SUBCUTANEOUS
     Route: 058
     Dates: start: 20111123
  7. GOSERELIN [Suspect]
     Indication: OESTROGEN RECEPTOR ASSAY POSITIVE
     Dosage: GOSERELIN 3.6 MG MONTHLY SUBCUTANEOUS
     Route: 058
     Dates: start: 20111123
  8. ALPRAZOLAM [Concomitant]
  9. COMPAZINE [Concomitant]
  10. XGEVA [Suspect]
     Indication: BREAST CANCER METASTATIC
     Dosage: DENOSUMAB 120 MG MONTHLY SUBCUTANEOUS
     Route: 058
     Dates: start: 20120119
  11. XGEVA [Suspect]
     Indication: OESTROGEN RECEPTOR ASSAY POSITIVE
     Dosage: DENOSUMAB 120 MG MONTHLY SUBCUTANEOUS
     Route: 058
     Dates: start: 20120119
  12. XGEVA [Suspect]
     Indication: BREAST CANCER METASTATIC
     Dosage: DENOSUMAB 120 MG MONTHLY SUBCUTANEOUS
     Route: 058
     Dates: start: 20111123
  13. XGEVA [Suspect]
     Indication: OESTROGEN RECEPTOR ASSAY POSITIVE
     Dosage: DENOSUMAB 120 MG MONTHLY SUBCUTANEOUS
     Route: 058
     Dates: start: 20111123
  14. XGEVA [Suspect]
     Indication: BREAST CANCER METASTATIC
     Dosage: DENOSUMAB 120 MG MONTHLY SUBCUTANEOUS
     Route: 058
     Dates: start: 20111222
  15. XGEVA [Suspect]
     Indication: OESTROGEN RECEPTOR ASSAY POSITIVE
     Dosage: DENOSUMAB 120 MG MONTHLY SUBCUTANEOUS
     Route: 058
     Dates: start: 20111222
  16. OMEPRAZOLE [Concomitant]
  17. ANASTROZOLE [Concomitant]
  18. RADIATION TO THE SPINE T4-L2 [Concomitant]
  19. BRAIN RADIATION [Concomitant]
  20. ALBUTEROL [Concomitant]

REACTIONS (9)
  - HEADACHE [None]
  - RHINORRHOEA [None]
  - PNEUMONITIS [None]
  - PNEUMONIA VIRAL [None]
  - INFLUENZA LIKE ILLNESS [None]
  - MYALGIA [None]
  - DYSPNOEA EXERTIONAL [None]
  - RADIATION PNEUMONITIS [None]
  - ARTHRALGIA [None]
